FAERS Safety Report 25166073 (Version 1)
Quarter: 2025Q2

REPORT INFORMATION
  Report Type: Spontaneous
  Country: CA (occurrence: CA)
  Receive Date: 20250407
  Receipt Date: 20250407
  Transmission Date: 20250716
  Serious: Yes (Life-Threatening)
  Sender: BAUSCH AND LOMB
  Company Number: CA-BAUSCH-BL-2025-004545

PATIENT
  Age: 73 Year
  Sex: Male

DRUGS (2)
  1. METRONIDAZOLE [Suspect]
     Active Substance: METRONIDAZOLE
     Indication: Cholangitis
     Route: 065
  2. ROCEPHIN [Suspect]
     Active Substance: CEFTRIAXONE SODIUM
     Indication: Cholangitis
     Route: 030

REACTIONS (1)
  - Respiratory distress [Recovered/Resolved]
